FAERS Safety Report 20608294 (Version 1)
Quarter: 2022Q1

REPORT INFORMATION
  Report Type: Spontaneous
  Country: US (occurrence: US)
  Receive Date: 20220317
  Receipt Date: 20220317
  Transmission Date: 20220424
  Serious: Yes (Other)
  Sender: FDA-Public Use
  Company Number: US-AVEDRO-AVE-2020-0100-AE

PATIENT
  Age: 63 Year
  Sex: Female

DRUGS (3)
  1. PHOTREXA VISCOUS [Suspect]
     Active Substance: RIBOFLAVIN 5^-PHOSPHATE SODIUM
     Indication: Keratoconus
     Dosage: LEFT EYE, 1 DROP Q 2 MIN FOR 60 MIN
     Route: 047
     Dates: start: 20200303, end: 20200303
  2. PHOTREXA [Suspect]
     Active Substance: RIBOFLAVIN 5^-PHOSPHATE SODIUM
     Indication: Keratoconus
     Dosage: LEFT EYE, 1DROP Q 2 MIN FOR 60 MIN
     Route: 047
     Dates: start: 20200303, end: 20200303
  3. DEVICE [Suspect]
     Active Substance: DEVICE
     Indication: Keratoconus
     Dosage: LEFT EYE
     Route: 047
     Dates: start: 20200303, end: 20200303

REACTIONS (2)
  - Corneal erosion [Recovered/Resolved with Sequelae]
  - Persistent corneal epithelial defect [Recovered/Resolved with Sequelae]

NARRATIVE: CASE EVENT DATE: 20200301
